FAERS Safety Report 7486656-8 (Version None)
Quarter: 2011Q2

REPORT INFORMATION
  Report Type: 
  Country: None (occurrence: None)
  Receive Date: 20110517
  Receipt Date: 20100617
  Transmission Date: 20111010
  Serious: No
  Sender: FDA-Public Use
  Company Number: US-NOVEN-ALL1-2010-03463

PATIENT

DRUGS (2)
  1. DAYTRANA [Suspect]
     Dosage: 15 MG, 1X/DAY:QD
     Route: 048
     Dates: start: 20100616
  2. ZYRTEC [Concomitant]
     Dosage: UNK, AS REQ'D
     Route: 048
     Dates: start: 20060101

REACTIONS (5)
  - PSYCHOMOTOR HYPERACTIVITY [None]
  - NAUSEA [None]
  - IMPULSIVE BEHAVIOUR [None]
  - APPLICATION SITE ERYTHEMA [None]
  - INITIAL INSOMNIA [None]
